FAERS Safety Report 6193788-3 (Version None)
Quarter: 2009Q2

REPORT INFORMATION
  Report Type: 
  Country: None (occurrence: None)
  Receive Date: 20090514
  Receipt Date: 20090511
  Transmission Date: 20091009
  Serious: No
  Sender: FDA-Public Use
  Company Number: 20096561

PATIENT
  Age: 18 Year
  Sex: Male

DRUGS (1)
  1. LIORESAL [Suspect]
     Indication: MUSCLE SPASTICITY
     Dosage: 660 MCG, EAILY, INTRATHECAL
     Route: 037

REACTIONS (2)
  - CATHETER SITE RELATED REACTION [None]
  - SKIN EROSION [None]
